FAERS Safety Report 19468971 (Version 1)
Quarter: 2021Q2

REPORT INFORMATION
  Report Type: Spontaneous
  Country: US (occurrence: US)
  Receive Date: 20210628
  Receipt Date: 20210628
  Transmission Date: 20210717
  Serious: Yes (Hospitalization, Other)
  Sender: FDA-Public Use
  Company Number: US-ORPHANEU-2021000102

PATIENT

DRUGS (1)
  1. CARBAGLU [Suspect]
     Active Substance: CARGLUMIC ACID
     Indication: METHYLMALONIC ACIDURIA
     Dosage: 200 MILLIGRAM, BID
     Dates: start: 20201208

REACTIONS (6)
  - COVID-19 [Unknown]
  - Crying [Unknown]
  - Somnolence [Unknown]
  - Poor feeding infant [Unknown]
  - Infection [Unknown]
  - Vomiting [Unknown]
